FAERS Safety Report 24753052 (Version 1)
Quarter: 2024Q4

REPORT INFORMATION
  Report Type: Spontaneous
  Country: US (occurrence: US)
  Receive Date: 20241219
  Receipt Date: 20241219
  Transmission Date: 20250115
  Serious: No
  Sender: BAYER HEALTHCARE LLC
  Company Number: US-BAYER-2024A177394

PATIENT
  Age: 6 Month
  Sex: Male

DRUGS (1)
  1. LOTRIMIN ULTRA ATHLETES FOOT [Suspect]
     Active Substance: BUTENAFINE HYDROCHLORIDE
     Indication: Product used for unknown indication
     Dosage: I TOOK A FINGERTIP AND APPLIED ON HIS GROWING AREA
     Route: 061
     Dates: start: 20241213, end: 20241213

REACTIONS (1)
  - Product use issue [None]

NARRATIVE: CASE EVENT DATE: 20241213
